FAERS Safety Report 4890521-X (Version None)
Quarter: 2006Q1

REPORT INFORMATION
  Report Type: 
  Country: None (occurrence: None)
  Receive Date: 20060123
  Receipt Date: 20060111
  Transmission Date: 20060701
  Serious: Yes (Hospitalization, Other)
  Sender: FDA-Public Use
  Company Number: 2006BI000689

PATIENT
  Age: 48 Year
  Sex: Female
  Weight: 56.6996 kg

DRUGS (2)
  1. AVONEX [Suspect]
     Indication: MYOSCLEROSIS
     Dosage: 30 UG; QW; IM
     Route: 030
  2. MULTIVITAMIN [Concomitant]

REACTIONS (11)
  - ANXIETY [None]
  - ASTHENIA [None]
  - BALANCE DISORDER [None]
  - CONTUSION [None]
  - CONVULSION [None]
  - DEPRESSION [None]
  - FALL [None]
  - GASTRIC DISORDER [None]
  - PERNICIOUS ANAEMIA [None]
  - SPEECH DISORDER [None]
  - VITAMIN B12 DECREASED [None]
